FAERS Safety Report 19211603 (Version 1)
Quarter: 2021Q2

REPORT INFORMATION
  Report Type: Spontaneous
  Country: US (occurrence: US)
  Receive Date: 20210503
  Receipt Date: 20210503
  Transmission Date: 20210717
  Serious: No
  Sender: FDA-Public Use
  Company Number: None

PATIENT
  Age: 53 Year
  Sex: Male
  Weight: 70 kg

DRUGS (2)
  1. HYDROXYZINE (HYDROXYZINE HCL 25MG TAB) [Suspect]
     Active Substance: HYDROXYZINE HYDROCHLORIDE
     Indication: INSOMNIA
     Route: 048
     Dates: start: 20200122, end: 20201001
  2. HYDROXYZINE (HYDROXYZINE HCL 25MG TAB) [Suspect]
     Active Substance: HYDROXYZINE HYDROCHLORIDE
     Indication: ANXIETY
     Route: 048
     Dates: start: 20200122, end: 20201001

REACTIONS (1)
  - Restlessness [None]

NARRATIVE: CASE EVENT DATE: 20200717
